FAERS Safety Report 10042035 (Version 1)
Quarter: 2014Q1

REPORT INFORMATION
  Report Type: Report from Study
  Country: FR (occurrence: FR)
  Receive Date: 20140327
  Receipt Date: 20140327
  Transmission Date: 20141002
  Serious: Yes (Other)
  Sender: FDA-Public Use
  Company Number: FR-CELGENEUS-056-21880-14032705

PATIENT
  Age: 63 Year
  Sex: Female

DRUGS (10)
  1. REVLIMID [Suspect]
     Indication: PLASMA CELL MYELOMA
     Route: 048
  2. SKENAN LP [Concomitant]
     Indication: PAIN
     Dosage: 100 MILLIGRAM
     Route: 048
     Dates: start: 20070309
  3. DUOPLAVIN [Concomitant]
     Indication: THROMBOSIS PROPHYLAXIS
     Dosage: 2 GRAM
     Route: 048
  4. GABAPENTIN [Concomitant]
     Indication: PAIN
     Dosage: 400 MILLIGRAM
     Route: 048
  5. TAVANIC [Concomitant]
     Indication: LUNG DISORDER
     Dosage: 500 MILLIGRAM
     Route: 048
  6. LACTULOSE [Concomitant]
     Indication: GLAUCOMA
     Dosage: 80/40
     Route: 048
  7. ACICLOVIR [Concomitant]
     Indication: GLAUCOMA
     Dosage: 10 MILLIGRAM
     Route: 048
     Dates: start: 20070309
  8. COSOPT [Concomitant]
     Indication: GLAUCOMA
     Dosage: 2 DROPS
     Route: 065
     Dates: start: 20070203
  9. LUMIGAN [Concomitant]
     Indication: GLAUCOMA
     Dosage: 1 DROPS
     Route: 065
     Dates: start: 20070203
  10. BRIMONIDINE [Concomitant]
     Indication: GLAUCOMA
     Dosage: 2 DROPS
     Route: 065
     Dates: start: 20070203

REACTIONS (1)
  - Thymoma [Not Recovered/Not Resolved]
